FAERS Safety Report 7779178-8 (Version None)
Quarter: 2011Q3

REPORT INFORMATION
  Report Type: 
  Country: None (occurrence: None)
  Receive Date: 20110926
  Receipt Date: 20110913
  Transmission Date: 20111222
  Serious: Yes (Other)
  Sender: FDA-Public Use
  Company Number: CA-ELI_LILLY_AND_COMPANY-CA201109003283

PATIENT
  Sex: Female

DRUGS (8)
  1. ZYPREXA [Suspect]
     Dosage: 7.5 MG, EACH EVENING
  2. LITHIUM [Concomitant]
  3. RESTORIL [Concomitant]
  4. LORAZEPAM [Concomitant]
  5. ZYPREXA [Suspect]
     Dosage: 2.5 MG, EACH EVENING
  6. CLONAZEPAM [Concomitant]
  7. ZYPREXA [Suspect]
     Indication: SCHIZOAFFECTIVE DISORDER
     Dosage: 15 MG, UNK
     Dates: start: 19980518
  8. ASPIRIN [Concomitant]

REACTIONS (6)
  - DYSLIPIDAEMIA [None]
  - HEPATITIS C [None]
  - TYPE 2 DIABETES MELLITUS [None]
  - WEIGHT INCREASED [None]
  - HYPERTENSION [None]
  - PAIN IN EXTREMITY [None]
